FAERS Safety Report 23526729 (Version 3)
Quarter: 2025Q1

REPORT INFORMATION
  Report Type: Spontaneous
  Country: US (occurrence: US)
  Receive Date: 20240215
  Receipt Date: 20250116
  Transmission Date: 20250409
  Serious: Yes (Hospitalization, Other)
  Sender: PFIZER
  Company Number: US-PFIZER INC-202400041951

PATIENT
  Age: 35 Year
  Sex: Male

DRUGS (4)
  1. METOCLOPRAMIDE HYDROCHLORIDE [Suspect]
     Active Substance: METOCLOPRAMIDE HYDROCHLORIDE
  2. MEMANTINE [Concomitant]
     Active Substance: MEMANTINE
     Indication: Toxicity to various agents
  3. MEMANTINE [Concomitant]
     Active Substance: MEMANTINE
     Indication: Catatonia
  4. MEMANTINE [Concomitant]
     Active Substance: MEMANTINE
     Indication: Dementia

REACTIONS (1)
  - Catatonia [Recovering/Resolving]
